FAERS Safety Report 9325882 (Version 1)
Quarter: 2013Q2

REPORT INFORMATION
  Report Type: Spontaneous
  Country: UY (occurrence: UY)
  Receive Date: 20130604
  Receipt Date: 20130604
  Transmission Date: 20140414
  Serious: Yes (Other)
  Sender: FDA-Public Use
  Company Number: UY-JNJFOC-20130515603

PATIENT
  Sex: 0

DRUGS (1)
  1. METHYLPHENIDATE HYDROCHLORIDE [Suspect]
     Indication: NEOPLASM MALIGNANT
     Route: 048

REACTIONS (16)
  - Hypertension [Unknown]
  - Arrhythmia [Unknown]
  - Tachycardia [Unknown]
  - Angina pectoris [Unknown]
  - Dyskinesia [Unknown]
  - Decreased appetite [Unknown]
  - Tremor [Unknown]
  - Agitation [Unknown]
  - Headache [Unknown]
  - Insomnia [Unknown]
  - Nervousness [Unknown]
  - Dry mouth [Unknown]
  - Nausea [Unknown]
  - Urticaria [Unknown]
  - Rash [Unknown]
  - Off label use [Unknown]
